FAERS Safety Report 6871503-5 (Version None)
Quarter: 2010Q3

REPORT INFORMATION
  Report Type: 
  Country: None (occurrence: None)
  Receive Date: 20100723
  Receipt Date: 20100714
  Transmission Date: 20110219
  Serious: Yes (Death, Hospitalization, Other)
  Sender: FDA-Public Use
  Company Number: GB-PFIZER INC-2010088845

PATIENT
  Age: 75 Year
  Sex: Male

DRUGS (5)
  1. CYCLOPHOSPHAMIDE [Suspect]
     Indication: B-CELL LYMPHOMA
     Dosage: UNK
  2. DOXORUBICIN HCL [Suspect]
     Indication: B-CELL LYMPHOMA
     Dosage: UNK
  3. PREDNISOLONE [Suspect]
     Indication: B-CELL LYMPHOMA
     Dosage: UNK
  4. VINCRISTINE SULFATE [Suspect]
     Indication: B-CELL LYMPHOMA
     Dosage: UNK
  5. RITUXIMAB [Suspect]
     Indication: B-CELL LYMPHOMA
     Dosage: UNK

REACTIONS (10)
  - ENCEPHALITIS ENTEROVIRAL [None]
  - GASTROENTERITIS [None]
  - HYPOGAMMAGLOBULINAEMIA [None]
  - HYPOGLYCAEMIA [None]
  - HYPOKALAEMIA [None]
  - HYPOMAGNESAEMIA [None]
  - IMMUNOSUPPRESSION [None]
  - PNEUMONIA PRIMARY ATYPICAL [None]
  - PULMONARY EMBOLISM [None]
  - SEPSIS [None]
